FAERS Safety Report 25522341 (Version 5)
Quarter: 2025Q4

REPORT INFORMATION
  Report Type: Report from Study
  Country: US (occurrence: US)
  Receive Date: 20250707
  Receipt Date: 20251107
  Transmission Date: 20260119
  Serious: Yes (Other)
  Sender: ABBVIE
  Company Number: US-ABBVIE-6354800

PATIENT
  Age: 63 Year
  Sex: Male

DRUGS (3)
  1. RINVOQ [Suspect]
     Active Substance: UPADACITINIB
     Indication: Crohn^s disease
     Route: 048
     Dates: start: 20250523
  2. RINVOQ [Suspect]
     Active Substance: UPADACITINIB
     Indication: Crohn^s disease
     Dosage: LAST ADMIN DATE 2025
     Route: 048
     Dates: start: 20250502
  3. JARDIANCE [Suspect]
     Active Substance: EMPAGLIFLOZIN
     Indication: Product used for unknown indication
     Route: 065

REACTIONS (8)
  - Wound dehiscence [Not Recovered/Not Resolved]
  - Faeces discoloured [Unknown]
  - Colon neoplasm [Unknown]
  - Dizziness [Unknown]
  - Fall [Unknown]
  - Kidney infection [Recovering/Resolving]
  - Constipation [Unknown]
  - Kidney infection [Unknown]

NARRATIVE: CASE EVENT DATE: 20250101
